FAERS Safety Report 12233991 (Version 1)
Quarter: 2016Q2

REPORT INFORMATION
  Report Type: Other
  Country: BR (occurrence: BR)
  Receive Date: 20160404
  Receipt Date: 20160404
  Transmission Date: 20160815
  Serious: Yes (Other)
  Sender: FDA-Public Use
  Company Number: BR-LUPIN PHARMACEUTICALS INC.-2016-01213

PATIENT
  Age: 20 Year
  Sex: Male

DRUGS (1)
  1. QUETIAPINE. [Suspect]
     Active Substance: QUETIAPINE
     Indication: SCHIZOPHRENIA
     Dosage: INCREASING DOSES, REACHING 800 MG/DAY
     Route: 065

REACTIONS (2)
  - Polydipsia [Recovered/Resolved]
  - Hyponatraemia [Recovered/Resolved]
